FAERS Safety Report 6030827-4 (Version None)
Quarter: 2009Q1

REPORT INFORMATION
  Report Type: 
  Country: None (occurrence: None)
  Receive Date: 20090106
  Receipt Date: 20081229
  Transmission Date: 20090719
  Serious: Yes (Hospitalization)
  Sender: FDA-Public Use
  Company Number: GXKR2008HU12311

PATIENT
  Age: 58 Year
  Sex: Male
  Weight: 75 kg

DRUGS (3)
  1. METOPROLOL HEXAL (NGX) (METOPROLOL) EXTENDED RELEASE TABLET, 50MG [Suspect]
     Indication: HYPERTONIA
     Dosage: 50 MG/DAY, ORAL
     Route: 048
  2. SIMVASTATIN [Concomitant]
  3. CLONAZEPAM [Concomitant]

REACTIONS (2)
  - BLOOD PRESSURE INCREASED [None]
  - EPISTAXIS [None]
